FAERS Safety Report 9419397 (Version 2)
Quarter: 2013Q4

REPORT INFORMATION
  Report Type: Spontaneous
  Country: BR (occurrence: BR)
  Receive Date: 20130725
  Receipt Date: 20131101
  Transmission Date: 20140711
  Serious: Yes (Other)
  Sender: FDA-Public Use
  Company Number: BR-ASTRAZENECA-2013SE12221

PATIENT
  Age: 738 Month
  Sex: Female
  Weight: 83 kg

DRUGS (5)
  1. ATACAND [Suspect]
     Indication: HYPERTENSION
     Dosage: ONCE DAILY
     Route: 048
     Dates: start: 20130204, end: 201307
  2. ATACAND COMB [Suspect]
     Indication: HYPERTENSION
     Dosage: 16/2.5 MG
     Route: 048
     Dates: start: 201206, end: 20130203
  3. ATACAND COMB [Suspect]
     Indication: HYPERTENSION
     Dosage: 16MG /2.5 MG
     Route: 048
     Dates: start: 201307
  4. PURAN T4 [Concomitant]
     Indication: THYROID DISORDER
     Route: 048
  5. ANCORON [Concomitant]
     Indication: ARRHYTHMIA
     Route: 048

REACTIONS (5)
  - Blood pressure increased [Recovered/Resolved]
  - Blood pressure decreased [Recovered/Resolved]
  - Somnolence [Not Recovered/Not Resolved]
  - Hypotension [Not Recovered/Not Resolved]
  - Drug ineffective [Unknown]
